FAERS Safety Report 8568725-4 (Version None)
Quarter: 2012Q3

REPORT INFORMATION
  Report Type: 
  Country: None (occurrence: None)
  Receive Date: 20120803
  Receipt Date: 20120316
  Transmission Date: 20120928
  Serious: No
  Sender: FDA-Public Use
  Company Number: US-ABBOTT-12P-163-0915977-00

PATIENT
  Sex: Female
  Weight: 99.426 kg

DRUGS (7)
  1. PRAVASTATIN SODIUM [Suspect]
     Indication: BLOOD CHOLESTEROL
  2. LISINOPRIL [Concomitant]
     Indication: HYPERTENSION
  3. CHROMIUM PICOLINATE [Concomitant]
     Indication: DIABETES MELLITUS
  4. VITAMIN E [Concomitant]
     Indication: PRODUCT USED FOR UNKNOWN INDICATION
  5. MELOXICAM [Concomitant]
     Indication: INTERVERTEBRAL DISCITIS
  6. CALCIUM [Concomitant]
     Indication: PRODUCT USED FOR UNKNOWN INDICATION
  7. NIASPAN [Suspect]
     Indication: BLOOD CHOLESTEROL

REACTIONS (1)
  - ASTHENIA [None]
